FAERS Safety Report 17650956 (Version 1)
Quarter: 2020Q2

REPORT INFORMATION
  Report Type: Spontaneous
  Country: US (occurrence: US)
  Receive Date: 20200409
  Receipt Date: 20200409
  Transmission Date: 20200713
  Serious: No
  Sender: FDA-Public Use
  Company Number: US-JNJFOC-20200406458

PATIENT
  Sex: Female
  Weight: 63 kg

DRUGS (1)
  1. WOMENS ROGAINE [Suspect]
     Active Substance: MINOXIDIL
     Indication: ALOPECIA
     Dosage: PRODUCT START ON FIRST WEEK OF SEPTEMBER-2019
     Route: 061
     Dates: start: 201909, end: 201910

REACTIONS (1)
  - Dandruff [Unknown]

NARRATIVE: CASE EVENT DATE: 2019
